FAERS Safety Report 5310543-4 (Version None)
Quarter: 2007Q2

REPORT INFORMATION
  Report Type: 
  Country: None (occurrence: None)
  Receive Date: 20070427
  Receipt Date: 20070417
  Transmission Date: 20071010
  Serious: Yes (Other)
  Sender: FDA-Public Use
  Company Number: US-MERCK-0704USA05426

PATIENT
  Sex: Male

DRUGS (8)
  1. ZOCOR [Suspect]
     Route: 048
     Dates: end: 19980101
  2. ZOCOR [Suspect]
     Route: 048
     Dates: start: 19980616
  3. TICLID [Concomitant]
     Route: 065
  4. ORUVAIL [Concomitant]
     Route: 065
  5. PRILOSEC [Concomitant]
     Route: 048
  6. CARDIZEM CD [Concomitant]
     Route: 065
  7. NIACIN [Concomitant]
     Route: 065
  8. ASPIRIN [Concomitant]
     Route: 065

REACTIONS (5)
  - BACK PAIN [None]
  - BLOOD CREATINE PHOSPHOKINASE MB INCREASED [None]
  - CARDIAC DISORDER [None]
  - MUSCULOSKELETAL PAIN [None]
  - MYOSITIS [None]
